FAERS Safety Report 9437683 (Version 1)
Quarter: 2013Q3

REPORT INFORMATION
  Report Type: Spontaneous
  Country: DK (occurrence: FR)
  Receive Date: 20130802
  Receipt Date: 20130802
  Transmission Date: 20140515
  Serious: Yes (Other)
  Sender: FDA-Public Use
  Company Number: FR-FRI-1000047439

PATIENT
  Age: 59 Year
  Sex: Female

DRUGS (5)
  1. ESCITALOPRAM [Suspect]
     Indication: DEPRESSION
     Dosage: 1 DF
     Route: 048
     Dates: start: 20130529
  2. LIORESAL [Suspect]
     Indication: ALCOHOL POISONING
     Dosage: PROGRESSIVE TITRATION UP TO 150 MG DAILY
     Route: 048
     Dates: start: 20130211
  3. LIORESAL [Suspect]
     Dosage: 12 DF
     Route: 048
     Dates: start: 20130612
  4. SERESTA [Concomitant]
     Dosage: 3 DF
     Route: 048
     Dates: start: 20130526
  5. KEPPRA [Concomitant]
     Dosage: 2 DF
     Dates: start: 200802

REACTIONS (1)
  - Epilepsy [Recovered/Resolved]
